FAERS Safety Report 7538382-4 (Version None)
Quarter: 2011Q2

REPORT INFORMATION
  Report Type: 
  Country: None (occurrence: None)
  Receive Date: 20110609
  Receipt Date: 20110607
  Transmission Date: 20111010
  Serious: Yes (Death)
  Sender: FDA-Public Use
  Company Number: US-PFIZER INC-2011088406

PATIENT
  Sex: Male
  Weight: 126.98 kg

DRUGS (1)
  1. NEURONTIN [Suspect]
     Dosage: 300MG TWO CAPSULES EVERY NIGHT
     Route: 048

REACTIONS (1)
  - CONVULSION [None]
